FAERS Safety Report 17979938 (Version 2)
Quarter: 2020Q3

REPORT INFORMATION
  Report Type: Spontaneous
  Country: DE (occurrence: DE)
  Receive Date: 20200703
  Receipt Date: 20200708
  Transmission Date: 20201103
  Serious: Yes (Other)
  Sender: FDA-Public Use
  Company Number: NVSC2020DE187111

PATIENT
  Age: 73 Year
  Sex: Female

DRUGS (3)
  1. SILYMARIN [Suspect]
     Active Substance: DIETARY SUPPLEMENT\HERBALS\MILK THISTLE
     Indication: PROPHYLAXIS
     Dosage: UNK (TOOK 4 TABLETS IN TOTAL)
     Route: 048
     Dates: start: 202005, end: 202005
  2. ATORVASTATIN [Suspect]
     Active Substance: ATORVASTATIN
     Indication: LIVER FUNCTION TEST INCREASED
     Dosage: UNK
     Route: 065
  3. ATORVASTATIN [Suspect]
     Active Substance: ATORVASTATIN
     Indication: BLOOD CHOLESTEROL INCREASED
     Dosage: UNK (TOOK 7 TABLETS IN TOTAL)
     Route: 048
     Dates: start: 202005, end: 20200524

REACTIONS (7)
  - Erythema [Not Recovered/Not Resolved]
  - Swelling face [Not Recovered/Not Resolved]
  - Skin wrinkling [Not Recovered/Not Resolved]
  - Pruritus [Not Recovered/Not Resolved]
  - Feeling hot [Not Recovered/Not Resolved]
  - Drug hypersensitivity [Not Recovered/Not Resolved]
  - Rash macular [Not Recovered/Not Resolved]

NARRATIVE: CASE EVENT DATE: 2020
